FAERS Safety Report 5022230-0 (Version None)
Quarter: 2006Q2

REPORT INFORMATION
  Report Type: 
  Country: None (occurrence: None)
  Receive Date: 20060609
  Receipt Date: 20010823
  Transmission Date: 20061013
  Serious: Yes (Disabling)
  Sender: FDA-Public Use
  Company Number: CVBU2001US00924

PATIENT
  Age: 68 Year
  Sex: Female

DRUGS (6)
  1. VOLTARENE 0,1% (NVO) [Suspect]
     Indication: CATARACT
     Dates: start: 19980715, end: 19980723
  2. VOLTARENE 0,1% (NVO) [Suspect]
     Indication: POSTOPERATIVE CARE
     Dates: start: 19980715, end: 19980723
  3. ACETYLSALICYLIC ACID SRT [Concomitant]
  4. FLUTICASONE PROPIONATE [Concomitant]
  5. MAGNESIUM [Concomitant]
  6. ZINC [Concomitant]

REACTIONS (4)
  - INTRAOCULAR PRESSURE INCREASED [None]
  - OPTIC ATROPHY [None]
  - TRAUMATIC HAEMATOMA [None]
  - VISUAL ACUITY REDUCED [None]
